FAERS Safety Report 4886388-6 (Version None)
Quarter: 2006Q1

REPORT INFORMATION
  Report Type: 
  Country: None (occurrence: None)
  Receive Date: 20060118
  Receipt Date: 20051129
  Transmission Date: 20060701
  Serious: Yes (Death)
  Sender: FDA-Public Use
  Company Number: USA0510112239

PATIENT
  Age: 72 Year
  Sex: Female
  Weight: 45.4 kg

DRUGS (6)
  1. ALIMTA [Suspect]
     Indication: LUNG NEOPLASM MALIGNANT
     Dosage: SEE IMAGE
     Dates: start: 20050427
  2. ALIMTA [Suspect]
     Indication: LUNG NEOPLASM MALIGNANT
     Dosage: SEE IMAGE
     Dates: start: 20050518
  3. ALIMTA [Suspect]
     Indication: LUNG NEOPLASM MALIGNANT
     Dosage: SEE IMAGE
     Dates: start: 20050614
  4. FOLIC ACID [Concomitant]
  5. VITAMIN B12 [Concomitant]
  6. DECADRON/CAN/(DEXAMETHASONE) [Concomitant]

REACTIONS (3)
  - HAEMORRHAGE [None]
  - PANCYTOPENIA [None]
  - SEPSIS [None]
